FAERS Safety Report 6893272-5 (Version None)
Quarter: 2010Q3

REPORT INFORMATION
  Report Type: 
  Country: None (occurrence: None)
  Receive Date: 20100731
  Receipt Date: 20090729
  Transmission Date: 20110219
  Serious: No
  Sender: FDA-Public Use
  Company Number: US-PFIZER INC-2009240143

PATIENT
  Sex: Female
  Weight: 86.182 kg

DRUGS (1)
  1. NEURONTIN [Suspect]
     Indication: NEURALGIA
     Dosage: FREQUENCY: 3X/DAY, EVERY DAY;
     Dates: start: 20090401, end: 20090701

REACTIONS (2)
  - ALOPECIA [None]
  - EMOTIONAL DISORDER [None]
